FAERS Safety Report 5254342-0 (Version None)
Quarter: 2007Q1

REPORT INFORMATION
  Report Type: 
  Country: None (occurrence: None)
  Receive Date: 20070302
  Receipt Date: 20070219
  Transmission Date: 20070707
  Serious: Yes (Other)
  Sender: FDA-Public Use
  Company Number: CA-ELI_LILLY_AND_COMPANY-CA200612003605

PATIENT
  Age: 77 Year
  Sex: Female
  Weight: 44.7 kg

DRUGS (9)
  1. EVISTA [Suspect]
     Indication: OSTEOPOROSIS
     Dosage: 60 MG, UNK
  2. VENTOLIN HFA [Concomitant]
  3. FLOVENT HFA [Concomitant]
  4. ACTONEL [Concomitant]
     Dosage: 35 MG, WEEKLY (1/W)
  5. PARIET [Concomitant]
     Dosage: 10 MG, 2/D
  6. ASPIRIN [Concomitant]
     Dosage: 325 MG, UNK
  7. VITAMIN D [Concomitant]
  8. CALCIUM [Concomitant]
  9. VITAMIN CAP [Concomitant]

REACTIONS (1)
  - CEREBROVASCULAR ACCIDENT [None]
